FAERS Safety Report 25801222 (Version 4)
Quarter: 2025Q4

REPORT INFORMATION
  Report Type: Report from Study
  Country: US (occurrence: US)
  Receive Date: 20250915
  Receipt Date: 20251125
  Transmission Date: 20260118
  Serious: Yes (Other)
  Sender: BIOGEN
  Company Number: US-BIOGEN-2025BI01323824

PATIENT
  Sex: Female

DRUGS (2)
  1. TYSABRI [Suspect]
     Active Substance: NATALIZUMAB
     Indication: Multiple sclerosis
     Dates: start: 20250329, end: 20250802
  2. TYSABRI [Suspect]
     Active Substance: NATALIZUMAB
     Dates: start: 20160714, end: 20170224

REACTIONS (2)
  - Pyelonephritis [Unknown]
  - Anal injury [Recovering/Resolving]
